FAERS Safety Report 4577971-6 (Version None)
Quarter: 2005Q1

REPORT INFORMATION
  Report Type: 
  Country: None (occurrence: None)
  Receive Date: 20050203
  Receipt Date: 20050203
  Transmission Date: 20050727
  Serious: Yes (Hospitalization)
  Sender: FDA-Public Use
  Company Number: None

PATIENT
  Age: 71 Year
  Sex: Female

DRUGS (1)
  1. ATENOLOL [Suspect]
     Indication: BLOOD PRESSURE
     Dosage: 25 MG PO
     Route: 048
     Dates: start: 20040811

REACTIONS (1)
  - ANGIONEUROTIC OEDEMA [None]
